FAERS Safety Report 6988369-5 (Version None)
Quarter: 2010Q3

REPORT INFORMATION
  Report Type: 
  Country: None (occurrence: None)
  Receive Date: 20100916
  Receipt Date: 20100908
  Transmission Date: 20110219
  Serious: Yes (Other)
  Sender: FDA-Public Use
  Company Number: JP-MERCK-1009USA01714

PATIENT
  Sex: Female

DRUGS (1)
  1. FOSAMAX [Suspect]
     Indication: OSTEOPOROSIS
     Route: 048
     Dates: start: 20090701, end: 20100701

REACTIONS (7)
  - GINGIVAL ABSCESS [None]
  - GINGIVAL SWELLING [None]
  - HYPOAESTHESIA [None]
  - OSTEONECROSIS OF JAW [None]
  - PAIN IN EXTREMITY [None]
  - SOMNOLENCE [None]
  - SPINAL OSTEOARTHRITIS [None]
